FAERS Safety Report 4454817-8 (Version None)
Quarter: 2004Q3

REPORT INFORMATION
  Report Type: 
  Country: None (occurrence: None)
  Receive Date: 20040826
  Receipt Date: 20040712
  Transmission Date: 20050211
  Serious: No
  Sender: FDA-Public Use
  Company Number: 2004US002196

PATIENT
  Age: 65 Year
  Sex: Male
  Weight: 104.3 kg

DRUGS (4)
  1. ALOXI [Suspect]
     Indication: PROPHYLAXIS OF NAUSEA AND VOMITING
     Dosage: 0.25 MG, SINGLE; INTRAVENOUS
     Route: 042
     Dates: start: 20040526, end: 20040526
  2. SODIUM CHLORIDE [Concomitant]
  3. CISPLATIN [Concomitant]
  4. ETOPOSIDE [Concomitant]

REACTIONS (2)
  - FLUSHING [None]
  - HEADACHE [None]
